FAERS Safety Report 12534886 (Version 1)
Quarter: 2016Q3

REPORT INFORMATION
  Report Type: Spontaneous
  Country: KR (occurrence: NZ)
  Receive Date: 20160707
  Receipt Date: 20160707
  Transmission Date: 20161109
  Serious: Yes (Other)
  Sender: FDA-Public Use
  Company Number: KR-009507513-1606KOR014105

PATIENT
  Age: 28 Year
  Sex: Female

DRUGS (4)
  1. KEYTRUDA [Suspect]
     Active Substance: PEMBROLIZUMAB
     Indication: GASTRIC CANCER
     Dosage: 8 CYCLES OF TREATMENT; 1 IN SOUTH KOREA AND THE REST IN NEW ZEALAND
     Dates: start: 201512
  2. KEYTRUDA [Suspect]
     Active Substance: PEMBROLIZUMAB
     Dosage: 100 MG, CYCLICAL (9TH CYCLE)
     Dates: start: 20160610
  3. KEYTRUDA [Suspect]
     Active Substance: PEMBROLIZUMAB
     Indication: GASTRIC CANCER
     Dosage: 8 CYCLES OF TREATMENT; 1 IN SOUTH KOREA AND THE REST IN NEW ZEALAND
     Dates: start: 2016
  4. KEYTRUDA [Suspect]
     Active Substance: PEMBROLIZUMAB
     Dosage: CYCLICAL (8TH CYCLE)
     Dates: start: 20160520

REACTIONS (7)
  - Anaemia [Recovering/Resolving]
  - Ascites [Unknown]
  - Diarrhoea [Not Recovered/Not Resolved]
  - Hypothyroidism [Not Recovered/Not Resolved]
  - Constipation [Recovered/Resolved]
  - Product use issue [Unknown]
  - Drug ineffective for unapproved indication [Unknown]

NARRATIVE: CASE EVENT DATE: 201512
